FAERS Safety Report 9026448 (Version 1)
Quarter: 2012Q4

REPORT INFORMATION
  Report Type: Spontaneous
  Country: JP (occurrence: None)
  Receive Date: 20121211
  Receipt Date: 20121211
  Transmission Date: 20130627
  Serious: Yes (Other)
  Sender: FDA-Public Use
  Company Number: DSA_61296_2012

PATIENT

DRUGS (3)
  1. THERAPEUTIC RADIOPHARMACEUTICALS (THERAPEUTIC RADIOPHARMACEUTICALS) [Suspect]
     Dosage: (400 mg/m2 for days 1-5 and 8-12; repeated twice every 5 weeks  Intravenous (not otherwise specified)
(Unknown until not continuing)
  2. CISPLATIN [Suspect]
     Dosage: (40 mg/m2 on days 1 and 8; repeated twice every 5 weeks Intravenous (not otherwise specified))
(Unknown until not continuing)
  3. THERAPEUTIC RADIOPHARMACEUTICALS (THERAPEUTIC RADIOPHARMACEUTICALS) [Suspect]
     Dosage: (2 GY daily on days  1-5,  8-12, and 15-19;  total dose of 60 Gy in 30 fractions; repeated twice/5 weeks)
(Unknown until not continuing)

REACTIONS (1)
  - Stomatitis [None]
